FAERS Safety Report 8020339-0 (Version None)
Quarter: 2012Q1

REPORT INFORMATION
  Report Type: 
  Country: None (occurrence: None)
  Receive Date: 20120103
  Receipt Date: 20110901
  Transmission Date: 20120608
  Serious: Yes (Other)
  Sender: FDA-Public Use
  Company Number: DE-ROCHE-1025675

PATIENT
  Sex: Male

DRUGS (3)
  1. LUCENTIS [Suspect]
     Route: 031
     Dates: start: 20080221, end: 20080221
  2. FRAXIPARIN [Suspect]
     Indication: INJURY
  3. LUCENTIS [Suspect]
     Indication: AGE-RELATED MACULAR DEGENERATION
     Route: 031
     Dates: start: 20070301

REACTIONS (3)
  - DRUG INEFFECTIVE [None]
  - DRUG INTERACTION [None]
  - VISUAL ACUITY REDUCED [None]
